FAERS Safety Report 18296457 (Version 1)
Quarter: 2020Q3

REPORT INFORMATION
  Report Type: Spontaneous
  Country: US (occurrence: US)
  Receive Date: 20200922
  Receipt Date: 20200922
  Transmission Date: 20201103
  Serious: No
  Sender: FDA-Public Use
  Company Number: US-BAXTER-2020BAX019293

PATIENT

DRUGS (3)
  1. VINCRISTINE SULFATE. [Suspect]
     Active Substance: VINCRISTINE SULFATE
     Indication: SOFT TISSUE SARCOMA
     Dosage: CHEMOTHERAPY
     Route: 065
     Dates: start: 2019
  2. IFEX [Suspect]
     Active Substance: IFOSFAMIDE
     Indication: SOFT TISSUE SARCOMA
     Dosage: CHEMOTHERAPY
     Route: 065
     Dates: start: 2019
  3. CYCLOPHOSPHAMIDE FOR INJECTION, USP [Suspect]
     Active Substance: CYCLOPHOSPHAMIDE
     Indication: SOFT TISSUE SARCOMA
     Dosage: CHEMOTHERAPY
     Route: 065
     Dates: start: 2019

REACTIONS (1)
  - Treatment failure [Unknown]
